FAERS Safety Report 12815315 (Version 6)
Quarter: 2017Q3

REPORT INFORMATION
  Report Type: Report from Study
  Country: NZ (occurrence: NZ)
  Receive Date: 20161005
  Receipt Date: 20170829
  Transmission Date: 20171127
  Serious: Yes (Other)
  Sender: FDA-Public Use
  Company Number: NZ-ROCHE-1837624

PATIENT
  Age: 68 Year
  Sex: Male
  Weight: 66.1 kg

DRUGS (17)
  1. FLIXOTIDE [Concomitant]
     Active Substance: FLUTICASONE PROPIONATE
     Indication: CHRONIC OBSTRUCTIVE PULMONARY DISEASE
     Dosage: 125  UNIT WAS REPORTED AS OTHER (INHALE)
     Route: 050
  2. CEFACLOR. [Concomitant]
     Active Substance: CEFACLOR
     Route: 048
     Dates: start: 20160705
  3. LORATADINE. [Concomitant]
     Active Substance: LORATADINE
     Indication: SUPPORTIVE CARE
     Route: 048
     Dates: start: 20160315
  4. ASPIRIN. [Concomitant]
     Active Substance: ASPIRIN
     Indication: PROPHYLAXIS
     Route: 048
     Dates: start: 20160705
  5. SPIRIVA [Concomitant]
     Active Substance: TIOTROPIUM BROMIDE MONOHYDRATE
     Indication: CHRONIC OBSTRUCTIVE PULMONARY DISEASE
     Dosage: 18 UNIT WAS REPORTED AS OTHER (INHALE)
     Route: 065
  6. CEFACLOR. [Concomitant]
     Active Substance: CEFACLOR
     Indication: ANTIBIOTIC THERAPY
     Route: 048
     Dates: start: 20160601
  7. OBINUTUZUMAB. [Suspect]
     Active Substance: OBINUTUZUMAB
     Indication: CHRONIC LYMPHOCYTIC LEUKAEMIA
     Dosage: ON 20/SEP/2016 AT 14:10, HE RECEIVED THE MOST RECENT DOSE OF IV OBINUTUZUMAB 1000 MG
     Route: 042
     Dates: start: 20160315
  8. DOXAZOSIN [Concomitant]
     Active Substance: DOXAZOSIN\DOXAZOSIN MESYLATE
     Indication: HYPERTENSION
     Route: 048
  9. PRED FORTE [Concomitant]
     Active Substance: PREDNISOLONE ACETATE
     Indication: RETINITIS
     Route: 047
     Dates: start: 20161005
  10. DUOLIN [Concomitant]
     Indication: CHRONIC OBSTRUCTIVE PULMONARY DISEASE
     Dosage: 2 UNIT WAS REPORTED AS OTHER (INHALE)
     Route: 050
  11. ACYCLOVIR. [Concomitant]
     Active Substance: ACYCLOVIR
     Route: 048
  12. ACYCLOVIR. [Concomitant]
     Active Substance: ACYCLOVIR
     Route: 048
  13. CILICAINE [Concomitant]
     Route: 048
     Dates: start: 20161010, end: 20161017
  14. CHLORAMBUCIL [Suspect]
     Active Substance: CHLORAMBUCIL
     Indication: CHRONIC LYMPHOCYTIC LEUKAEMIA
     Dosage: ON 20/SEP/2016 AT 13:10, HE RECEIVED THE MOST RECENT DOSE OF CHLORAMBUCIL 34 MG
     Route: 048
     Dates: start: 20160315
  15. RANITIDINE. [Concomitant]
     Active Substance: RANITIDINE
     Indication: SUPPORTIVE CARE
     Route: 048
     Dates: start: 20160314
  16. METOPROLOL CR [Concomitant]
     Indication: HYPERTENSION
     Route: 048
     Dates: start: 20160408
  17. NEILMED SINUS RINSE [Concomitant]
     Active Substance: SODIUM BICARBONATE\SODIUM CHLORIDE
     Route: 050
     Dates: start: 20161020

REACTIONS (1)
  - Keratitis [Not Recovered/Not Resolved]

NARRATIVE: CASE EVENT DATE: 20160920
